FAERS Safety Report 6302841-2 (Version None)
Quarter: 2009Q3

REPORT INFORMATION
  Report Type: 
  Country: None (occurrence: None)
  Receive Date: 20090810
  Receipt Date: 20090804
  Transmission Date: 20100115
  Serious: Yes (Hospitalization)
  Sender: FDA-Public Use
  Company Number: US-KINGPHARMUSA00001-K200900677

PATIENT
  Age: 82 Year
  Sex: Female

DRUGS (14)
  1. ALTACE [Suspect]
     Indication: HYPERTENSION
     Dosage: 10 MG, QD
     Route: 048
     Dates: end: 20090317
  2. DIGOXIN [Suspect]
     Indication: CARDIAC FAILURE
     Dosage: 0.25 MG, QD
     Route: 048
     Dates: end: 20090317
  3. DIGOXIN [Suspect]
     Dosage: UNK
     Route: 048
     Dates: start: 20090327
  4. ALDACTONE [Suspect]
     Indication: HYPERTENSION
     Dosage: 25 MG, QD
     Route: 048
     Dates: end: 20090317
  5. ACTRAPID INSULIN NOVO [Suspect]
     Indication: TYPE 2 DIABETES MELLITUS
     Dosage: UNK
     Route: 042
     Dates: end: 20090317
  6. AMLOR [Concomitant]
     Dosage: UNK
     Route: 048
  7. LASIX [Concomitant]
     Dosage: UNK
  8. PRAXILENE [Concomitant]
     Dosage: UNK
     Route: 048
  9. ATORVASTATIN CALCIUM [Concomitant]
     Dosage: UNK
     Route: 048
  10. LANTUS [Concomitant]
     Indication: TYPE 2 DIABETES MELLITUS
     Dosage: UNK
  11. TEMESTA [Concomitant]
     Dosage: UNK
     Route: 048
  12. ATARAX [Concomitant]
     Dosage: UNK
  13. NORSET [Concomitant]
     Dosage: UNK
     Route: 048
  14. PREVISCAN [Concomitant]
     Dosage: UNK
     Route: 048

REACTIONS (9)
  - CARDIAC FAILURE [None]
  - CARDIOACTIVE DRUG LEVEL INCREASED [None]
  - CHOLESTASIS [None]
  - DECREASED APPETITE [None]
  - DEHYDRATION [None]
  - DYSPNOEA [None]
  - HYPOTENSION [None]
  - LEFT VENTRICULAR FAILURE [None]
  - RENAL FAILURE [None]
